FAERS Safety Report 10921567 (Version 1)
Quarter: 2015Q1

REPORT INFORMATION
  Report Type: Spontaneous
  Country: FR (occurrence: FR)
  Receive Date: 20150317
  Receipt Date: 20150317
  Transmission Date: 20150721
  Serious: Yes (Hospitalization, Other)
  Sender: FDA-Public Use
  Company Number: FR-PFIZER INC-2015089855

PATIENT
  Age: 83 Year
  Sex: Female

DRUGS (12)
  1. LASILIX [Interacting]
     Active Substance: FUROSEMIDE
     Indication: HYPERTENSION
     Dosage: 20 MG, 1X/DAY
     Route: 048
     Dates: end: 201402
  2. CONTRAMAL [Concomitant]
     Active Substance: TRAMADOL HYDROCHLORIDE
     Dosage: 50 MG, UNK
  3. DIFFU K [Concomitant]
     Active Substance: POTASSIUM CHLORIDE
     Dosage: UNK
  4. ALDACTONE [Suspect]
     Active Substance: SPIRONOLACTONE
     Indication: HYPERTENSION
     Dosage: 75 MG, 1X/DAY
     Route: 048
     Dates: end: 201402
  5. RAMIPRIL MYLAN [Interacting]
     Active Substance: RAMIPRIL
     Indication: HYPERTENSION
     Dosage: 2.5 MG, 1X/DAY
     Route: 048
     Dates: end: 201402
  6. BISOCE [Interacting]
     Active Substance: BISOPROLOL
     Dosage: 1.25 MG, UNK
     Route: 048
  7. BEVITINE [Concomitant]
     Active Substance: THIAMINE
     Dosage: 250 MG, UNK
  8. PREVISCAN [Concomitant]
     Active Substance: FLUINDIONE
     Dosage: 20 MG, UNK
  9. INIPOMP [Concomitant]
     Active Substance: PANTOPRAZOLE SODIUM
     Dosage: 40 MG, UNK
  10. NEO-MERCAZOLE [Concomitant]
     Active Substance: CARBIMAZOLE
     Dosage: 5 MG, UNK
  11. SERESTA [Concomitant]
     Active Substance: OXAZEPAM
     Dosage: 10 MG, UNK
  12. XANAX [Concomitant]
     Active Substance: ALPRAZOLAM
     Dosage: 0.25 MG, UNK

REACTIONS (6)
  - Malaise [Recovered/Resolved]
  - Hypotension [Recovered/Resolved]
  - Tachycardia [Recovered/Resolved]
  - Respiratory tract infection [Unknown]
  - Dehydration [Unknown]
  - Drug interaction [Recovered/Resolved]

NARRATIVE: CASE EVENT DATE: 20140207
